FAERS Safety Report 10272985 (Version 1)
Quarter: 2014Q1

REPORT INFORMATION
  Report Type: Spontaneous
  Country: US (occurrence: None)
  Receive Date: 20140306
  Receipt Date: 20140306
  Transmission Date: 20141002
  Serious: Yes (Other)
  Sender: FDA-Public Use
  Company Number: 163-21880-13062021

PATIENT
  Age: 86 Year
  Sex: Female
  Weight: 59 kg

DRUGS (12)
  1. REVLIMID (LENALIDOMIDE) (25 MILLIGRAM, CAPSULES) [Suspect]
     Indication: CHRONIC LYMPHOCYTIC LEUKAEMIA
     Dosage: 25 MG, 21 IN 28 D, PO
     Route: 048
     Dates: start: 20130603
  2. COREG (CARVEDILOL (TABLETS) [Concomitant]
  3. ACYCLOVIR (ACICLOVIR (TABLETS) [Concomitant]
  4. ASPIRIN (ACETYLSALICYLIC ACID) (ENTERIC-COATED TABLET) [Concomitant]
  5. LISINOPRIL (LISINOPRIL) [Concomitant]
  6. ACTONEL (RISEDRONATE SODIUM) (TABLETS) [Concomitant]
  7. CRESTOR (ROSUVASTATIN) (TABLETS) [Concomitant]
  8. MIRALAX (MACROGOL) (POWDER) [Concomitant]
  9. OMEPRAZOLE (OMEPRAZOLE) (TABLETS) [Concomitant]
  10. VITAMIN D (ERGOCALCIFEROL) (CAPSULES) [Concomitant]
  11. PROCRIT (ERYTHROPOIETIN) [Concomitant]
  12. ACETAMINOPHEN (PARACETAMOL) [Concomitant]

REACTIONS (10)
  - Platelet count decreased [None]
  - Pruritus generalised [None]
  - Unevaluable event [None]
  - Speech disorder [None]
  - Memory impairment [None]
  - Faeces soft [None]
  - Muscle spasms [None]
  - Nausea [None]
  - Neck pain [None]
  - Vision blurred [None]
